FAERS Safety Report 21160847 (Version 2)
Quarter: 2022Q3

REPORT INFORMATION
  Report Type: Report from Study
  Country: US (occurrence: US)
  Receive Date: 20220802
  Receipt Date: 20220817
  Transmission Date: 20221026
  Serious: No
  Sender: FDA-Public Use
  Company Number: US-JNJFOC-20220750311

PATIENT
  Age: 58 Year
  Sex: Female
  Weight: 86.714 kg

DRUGS (17)
  1. SPRAVATO [Suspect]
     Active Substance: ESKETAMINE
     Indication: Depression
     Dosage: 56 MG, 44 DOSES
     Dates: start: 20210316, end: 20220707
  2. SPRAVATO [Suspect]
     Active Substance: ESKETAMINE
     Dosage: RECENT DOSE
     Dates: start: 20220721, end: 20220721
  3. ADDERALL [Concomitant]
     Active Substance: AMPHETAMINE ASPARTATE\AMPHETAMINE SULFATE\DEXTROAMPHETAMINE SACCHARATE\DEXTROAMPHETAMINE SULFATE
     Route: 048
     Dates: start: 20220708, end: 20220802
  4. LIORESAL [Concomitant]
     Active Substance: BACLOFEN
     Indication: Muscle spasms
     Dosage: THREE TIMES ONCE IN A DAY, AS NEEDED FOR MUSCLE SPASMS
     Route: 048
     Dates: start: 20220718
  5. KLONOPIN [Concomitant]
     Active Substance: CLONAZEPAM
     Route: 048
     Dates: start: 20220706
  6. PRISTIQ EXTENDED-RELEASE [Concomitant]
     Active Substance: DESVENLAFAXINE SUCCINATE
     Dosage: RECENTLY TAKEN ON 08/JUL/2022
     Route: 048
     Dates: start: 20191009
  7. DICLOFENAC [Concomitant]
     Active Substance: DICLOFENAC
     Indication: Arthralgia
     Dosage: APPLY 4 G TOPICALLY TO THE APPROPRIATE AREA AS DIRECTED, 4 TIMES A DAY AS NEEDED
     Route: 061
     Dates: start: 20220601
  8. FAMVIR [Concomitant]
     Active Substance: FAMCICLOVIR
     Route: 048
  9. NEURONTIN [Concomitant]
     Active Substance: GABAPENTIN
     Dosage: TAKE 1 CAPSULE IN THE MORNING, AND 1 CAPSULE AT NOON AND 2 CAPSULES AT BED TIME EVERY DAY
     Route: 048
     Dates: start: 20220601
  10. NORCO [Concomitant]
     Active Substance: ACETAMINOPHEN\HYDROCODONE BITARTRATE
     Indication: Pain
     Dosage: 10-325 MG PER TABLET.
     Route: 048
     Dates: start: 20220601
  11. NORCO [Concomitant]
     Active Substance: ACETAMINOPHEN\HYDROCODONE BITARTRATE
     Dosage: 10-325 MG PER TABLET.
     Route: 048
     Dates: start: 20220713, end: 20220726
  12. LAMOTRIGINE [Concomitant]
     Active Substance: LAMOTRIGINE
     Route: 048
     Dates: start: 20220727, end: 20220801
  13. LAMOTRIGINE [Concomitant]
     Active Substance: LAMOTRIGINE
     Route: 048
  14. COZAAR [Concomitant]
     Active Substance: LOSARTAN POTASSIUM
     Route: 048
     Dates: start: 20220413
  15. PHENERGAN [Concomitant]
     Active Substance: PROMETHAZINE HYDROCHLORIDE
     Indication: Nausea
     Route: 048
     Dates: start: 20211228
  16. PHENERGAN [Concomitant]
     Active Substance: PROMETHAZINE HYDROCHLORIDE
     Indication: Vomiting
  17. VITAMIN D3 [Concomitant]
     Active Substance: CHOLECALCIFEROL
     Route: 048
     Dates: start: 20220328

REACTIONS (1)
  - Panic attack [Recovered/Resolved]

NARRATIVE: CASE EVENT DATE: 20220721
